FAERS Safety Report 19932956 (Version 1)
Quarter: 2021Q4

REPORT INFORMATION
  Report Type: Spontaneous
  Country: US (occurrence: US)
  Receive Date: 20211007
  Receipt Date: 20211007
  Transmission Date: 20220303
  Serious: No
  Sender: FDA-Public Use
  Company Number: None

PATIENT
  Age: 74 Year
  Sex: Male

DRUGS (1)
  1. BACITRACIN [Suspect]
     Active Substance: BACITRACIN
     Indication: Product used for unknown indication
     Dosage: ?          OTHER STRENGTH:NOT PROVIDED;QUANTITY:1 NOT PROVIDED;OTHER FREQUENCY:NOT PROVIDED;

REACTIONS (1)
  - Drug hypersensitivity [None]
